FAERS Safety Report 9729634 (Version 3)
Quarter: 2014Q3

REPORT INFORMATION
  Report Type: Spontaneous
  Country: GB (occurrence: None)
  Receive Date: 20131203
  Receipt Date: 20140801
  Transmission Date: 20150326
  Serious: Yes (Other)
  Sender: FDA-Public Use
  Company Number: AUR-APL-2013-09830

PATIENT
  Age: 42 Year
  Sex: Female
  Weight: 74 kg

DRUGS (13)
  1. ZIDOVUDINE. [Suspect]
     Active Substance: ZIDOVUDINE
     Indication: ANTIVIRAL PROPHYLAXIS
  2. NOVORAPID [Concomitant]
     Active Substance: INSULIN ASPART
  3. INTELENCE [Suspect]
     Active Substance: ETRAVIRINE
     Indication: HIV INFECTION
     Dosage: 1000 MG, (1000 MG, 1 IN 1 D), ORAL
     Route: 048
     Dates: start: 20081023
  4. NORVIR [Suspect]
     Active Substance: RITONAVIR
     Indication: HIV INFECTION
     Dosage: 400 MG (200 MG, 1 IN 1 D), UNKNOWN
     Route: 048
     Dates: start: 20060906, end: 20081023
  5. PREZISTA [Suspect]
     Active Substance: DARUNAVIR ETHANOLATE
     Indication: HIV INFECTION
     Dosage: 1200 MG (600 MG, 2 IN 1 D), ORAL
     Route: 048
     Dates: start: 20081023
  6. OXYGEN. [Concomitant]
     Active Substance: OXYGEN
  7. INSULIN (INSULIN) [Concomitant]
     Active Substance: INSULIN NOS
  8. APTIVUS [Suspect]
     Active Substance: TIPRANAVIR
     Indication: HIV INFECTION
     Dosage: 1000 MG (500 MG, 2 IN 1 D), UNKNOWN
     Route: 048
     Dates: start: 20060905, end: 20081023
  9. NITROUS OXIDE. [Concomitant]
     Active Substance: NITROUS OXIDE
  10. ISENTRESS [Suspect]
     Active Substance: RALTEGRAVIR POTASSIUM
     Indication: HIV INFECTION
     Dosage: 800 MG (400 MG, 2 IN 1 D), UNKNOWN
     Route: 048
     Dates: start: 20081023, end: 20090221
  11. PREDNISOLONE (PREDNISOLONE) [Concomitant]
     Active Substance: PREDNISOLONE
  12. TRUVADA [Suspect]
     Active Substance: EMTRICITABINE\TENOFOVIR DISOPROXIL FUMARATE
     Indication: HIV INFECTION
     Route: 048
     Dates: start: 20070605, end: 20081023
  13. PREDNISOLONE. [Concomitant]
     Active Substance: PREDNISOLONE

REACTIONS (2)
  - Premature labour [None]
  - Exposure during pregnancy [None]

NARRATIVE: CASE EVENT DATE: 20090221
